FAERS Safety Report 15507970 (Version 2)
Quarter: 2020Q2

REPORT INFORMATION
  Report Type: Spontaneous
  Country: US (occurrence: IL)
  Receive Date: 20181016
  Receipt Date: 20200522
  Transmission Date: 20200713
  Serious: Yes (Death, Life-Threatening)
  Sender: FDA-Public Use
  Company Number: IL-FRESENIUS KABI-FK201809328

PATIENT
  Age: 73 Year
  Sex: Male
  Weight: 70 kg

DRUGS (7)
  1. CISPLATIN (MANUFACTURER UNKNOWN) [Suspect]
     Active Substance: CISPLATIN
     Indication: SQUAMOUS CELL CARCINOMA OF HEAD AND NECK
     Route: 041
     Dates: start: 20180808, end: 20180808
  2. PLACEBO [Suspect]
     Active Substance: UNSPECIFIED INGREDIENT
     Indication: SQUAMOUS CELL CARCINOMA OF HEAD AND NECK
     Dosage: (EVERY 2 WEEKS; DURING MAINTENANCE PHASE)
     Route: 041
     Dates: start: 20180723
  3. LIPITOR [Concomitant]
     Active Substance: ATORVASTATIN CALCIUM
     Indication: HYPERLIPIDAEMIA
     Route: 065
     Dates: start: 201802
  4. NORMALOL [Concomitant]
     Active Substance: ATENOLOL
     Indication: HYPERTENSION
     Route: 065
     Dates: start: 20020209
  5. TRITACE [Concomitant]
     Active Substance: RAMIPRIL
     Indication: HYPERTENSION
     Route: 065
     Dates: start: 20141121
  6. CARTIA [Concomitant]
     Indication: CEREBROVASCULAR DISORDER
     Route: 065
     Dates: start: 20061209
  7. PLACEBO [Suspect]
     Active Substance: UNSPECIFIED INGREDIENT
     Dosage: (EVERY 2 WEEKS; DURING MAINTENANCE PHASE)
     Route: 041

REACTIONS (3)
  - Cardiac failure congestive [Not Recovered/Not Resolved]
  - Sepsis [Fatal]
  - Pneumonia [Not Recovered/Not Resolved]

NARRATIVE: CASE EVENT DATE: 20180812
